FAERS Safety Report 9536854 (Version 6)
Quarter: 2016Q2

REPORT INFORMATION
  Report Type: Report from Study
  Country: US (occurrence: US)
  Receive Date: 20130919
  Receipt Date: 20160429
  Transmission Date: 20160815
  Serious: Yes (Death, Hospitalization, Other)
  Sender: FDA-Public Use
  Company Number: US-ROCHE-1276644

PATIENT
  Sex: Female

DRUGS (6)
  1. EVEROLIMUS [Suspect]
     Active Substance: EVEROLIMUS
     Indication: BREAST CANCER METASTATIC
  2. TRASTUZUMAB [Suspect]
     Active Substance: TRASTUZUMAB
     Indication: HER-2 POSITIVE BREAST CANCER
     Dosage: LOADING DOSE
     Route: 042
  3. VINORELBINE [Suspect]
     Active Substance: VINORELBINE\VINORELBINE TARTRATE
     Indication: HER-2 POSITIVE BREAST CANCER
     Route: 042
  4. TRASTUZUMAB [Suspect]
     Active Substance: TRASTUZUMAB
     Indication: BREAST CANCER METASTATIC
     Route: 042
  5. VINORELBINE [Suspect]
     Active Substance: VINORELBINE\VINORELBINE TARTRATE
     Indication: BREAST CANCER METASTATIC
  6. EVEROLIMUS [Suspect]
     Active Substance: EVEROLIMUS
     Indication: HER-2 POSITIVE BREAST CANCER
     Route: 048

REACTIONS (68)
  - Neutropenia [Unknown]
  - Dyspnoea [Unknown]
  - Hypokalaemia [Unknown]
  - Seizure [Unknown]
  - Arthralgia [Unknown]
  - Sepsis [Unknown]
  - Hypoxia [Unknown]
  - Bone pain [Unknown]
  - Pneumonitis [Unknown]
  - Neutrophil count decreased [Unknown]
  - Hypocalcaemia [Unknown]
  - Agranulocytosis [Unknown]
  - Weight decreased [Unknown]
  - Hypertriglyceridaemia [Unknown]
  - Dyspnoea exertional [Unknown]
  - Peripheral sensory neuropathy [Unknown]
  - Acute kidney injury [Unknown]
  - Pneumonia [Unknown]
  - Pyrexia [Unknown]
  - Cough [Unknown]
  - Asthenia [Unknown]
  - Pain in extremity [Unknown]
  - Blood alkaline phosphatase increased [Unknown]
  - Cellulitis [Unknown]
  - Herpes zoster [Unknown]
  - Syncope [Unknown]
  - Rash [Unknown]
  - Fatigue [Unknown]
  - White blood cell count decreased [Unknown]
  - Vomiting [Unknown]
  - Myalgia [Unknown]
  - Mouth ulceration [Unknown]
  - Diabetes mellitus [Unknown]
  - Cataract [Unknown]
  - Gastroenteritis [Unknown]
  - Febrile neutropenia [Unknown]
  - Thrombocytopenia [Unknown]
  - Alanine aminotransferase increased [Unknown]
  - Gamma-glutamyltransferase increased [Unknown]
  - Pulmonary embolism [Unknown]
  - General physical health deterioration [Unknown]
  - Stomatitis [Unknown]
  - Nausea [Unknown]
  - Epistaxis [Unknown]
  - Muscle spasms [Unknown]
  - Haemoglobin decreased [Unknown]
  - Hypertension [Unknown]
  - Lymphopenia [Unknown]
  - Pleural effusion [Unknown]
  - Granulocytopenia [Unknown]
  - Lethargy [Unknown]
  - Death [Fatal]
  - Leukopenia [Unknown]
  - Anaemia [Unknown]
  - Blood triglycerides increased [Unknown]
  - Hyperglycaemia [Unknown]
  - Decreased appetite [Unknown]
  - Headache [Unknown]
  - Abdominal pain upper [Unknown]
  - Neuropathy peripheral [Unknown]
  - Musculoskeletal pain [Unknown]
  - Interstitial lung disease [Unknown]
  - Hypotension [Unknown]
  - Acute respiratory distress syndrome [Fatal]
  - Aspartate aminotransferase increased [Unknown]
  - Hyponatraemia [Unknown]
  - Diarrhoea [Unknown]
  - Constipation [Unknown]
